FAERS Safety Report 24973284 (Version 3)
Quarter: 2025Q2

REPORT INFORMATION
  Report Type: Report from Study
  Country: US (occurrence: US)
  Receive Date: 20250216
  Receipt Date: 20250603
  Transmission Date: 20250717
  Serious: Yes (Other)
  Sender: ABBVIE
  Company Number: US-ABBVIE-6133133

PATIENT
  Sex: Female

DRUGS (1)
  1. HUMIRA [Suspect]
     Active Substance: ADALIMUMAB
     Indication: Psoriasis
     Route: 058
     Dates: start: 20190201

REACTIONS (10)
  - Giant cell arteritis [Unknown]
  - Influenza like illness [Unknown]
  - Arthritis [Not Recovered/Not Resolved]
  - Colitis microscopic [Unknown]
  - Anaemia [Unknown]
  - Supraventricular tachycardia [Unknown]
  - Pain of skin [Unknown]
  - Pain [Unknown]
  - Fatigue [Unknown]
  - Nausea [Unknown]
